FAERS Safety Report 18305113 (Version 1)
Quarter: 2020Q3

REPORT INFORMATION
  Report Type: Spontaneous
  Country: US (occurrence: US)
  Receive Date: 20200923
  Receipt Date: 20200923
  Transmission Date: 20201103
  Serious: Yes (Other)
  Sender: FDA-Public Use
  Company Number: US-GLAXOSMITHKLINE-US2020GSK188212

PATIENT
  Age: 45 Year
  Sex: Female

DRUGS (6)
  1. FLUTICASONE PROPIONATE. [Interacting]
     Active Substance: FLUTICASONE PROPIONATE
     Indication: ASTHMA
     Dosage: TWO SPRAYS IN EACH NOSTRIL ONCE DAILY
     Route: 045
  2. FLUTICASONE PROPIONATE. [Interacting]
     Active Substance: FLUTICASONE PROPIONATE
  3. RALTEGRAVIR. [Concomitant]
     Active Substance: RALTEGRAVIR
     Indication: HIV INFECTION
     Dosage: 400 MG, BID
     Route: 048
     Dates: start: 1996
  4. FLUTICASONE PROPIONATE. [Suspect]
     Active Substance: FLUTICASONE PROPIONATE
     Indication: ASTHMA
     Dosage: 1 PUFF(S), BID
     Route: 055
  5. RITONAVIR. [Interacting]
     Active Substance: RITONAVIR
     Indication: HIV INFECTION
     Dosage: 10 MG, BID
     Route: 048
     Dates: start: 1996
  6. DARUNAVIR [Suspect]
     Active Substance: DARUNAVIR
     Indication: HIV INFECTION
     Dosage: 800 MG, QD
     Route: 048
     Dates: start: 1996

REACTIONS (19)
  - Skin striae [Recovered/Resolved]
  - Blood 25-hydroxycholecalciferol decreased [Not Recovered/Not Resolved]
  - Blood 1,25-dihydroxycholecalciferol decreased [Not Recovered/Not Resolved]
  - Muscular weakness [Recovered/Resolved]
  - Osteopenia [Unknown]
  - Osteonecrosis [Recovered/Resolved]
  - Adrenal insufficiency [Recovered/Resolved]
  - Bone scan abnormal [Unknown]
  - Cushing^s syndrome [Recovered/Resolved]
  - Arthralgia [Unknown]
  - Goitre [Recovered/Resolved]
  - ACTH stimulation test abnormal [Recovered/Resolved]
  - Hypercalcaemia [Recovered/Resolved]
  - Central obesity [Recovered/Resolved]
  - Adrenal suppression [Recovered/Resolved]
  - N-telopeptide urine increased [Unknown]
  - Inhibitory drug interaction [Unknown]
  - Cushingoid [Recovered/Resolved]
  - Blood parathyroid hormone decreased [Recovered/Resolved]

NARRATIVE: CASE EVENT DATE: 2015
